FAERS Safety Report 19840671 (Version 1)
Quarter: 2021Q3

REPORT INFORMATION
  Report Type: Spontaneous
  Country: US (occurrence: US)
  Receive Date: 20210916
  Receipt Date: 20210916
  Transmission Date: 20211014
  Serious: Yes (Hospitalization)
  Sender: FDA-Public Use
  Company Number: None

PATIENT
  Age: 77 Year
  Sex: Male

DRUGS (9)
  1. LOSARTAN/ HCT [Concomitant]
     Dates: start: 20210508
  2. HYDROCHLOROT [Concomitant]
     Active Substance: HYDROCHLOROTHIAZIDE
     Dates: start: 20210531
  3. OLM MED/ HCTZ [Concomitant]
     Dates: start: 20210426
  4. MEGESTROL [Concomitant]
     Active Substance: MEGESTROL
     Dates: start: 20210126
  5. AMLODIPINE [Concomitant]
     Active Substance: AMLODIPINE BESYLATE
     Dates: start: 20210412
  6. PANTOPRAZOLE [Concomitant]
     Active Substance: PANTOPRAZOLE
     Dates: start: 20210529
  7. PREDNISONE. [Concomitant]
     Active Substance: PREDNISONE
     Dates: start: 20210728
  8. ELIQUIS [Concomitant]
     Active Substance: APIXABAN
     Dates: start: 20210819
  9. ABIRATERONE ACETATE. [Suspect]
     Active Substance: ABIRATERONE ACETATE
     Indication: PRODUCT USED FOR UNKNOWN INDICATION
     Route: 048
     Dates: start: 20210315

REACTIONS (1)
  - Full blood count decreased [None]

NARRATIVE: CASE EVENT DATE: 20210901
